FAERS Safety Report 9531094 (Version 1)
Quarter: 2013Q3

REPORT INFORMATION
  Report Type: Spontaneous
  Country: US (occurrence: US)
  Receive Date: 20130918
  Receipt Date: 20130918
  Transmission Date: 20140515
  Serious: No
  Sender: FDA-Public Use
  Company Number: US-BAYER-2013-112433

PATIENT
  Age: 80 Year
  Sex: Female
  Weight: 74 kg

DRUGS (6)
  1. ALEVE CAPLET [Suspect]
     Indication: ANALGESIC THERAPY
     Dosage: UNK DF, PRN
     Route: 048
  2. ALEVE CAPLET [Suspect]
     Indication: ANALGESIC THERAPY
     Dosage: 2 IN THE MORNING AND 2 IN THE EVENING
  3. LEVOTHYROXINE [Concomitant]
  4. LOSARTAN [Concomitant]
  5. GLUCOSAMINE [Concomitant]
  6. TRAMADOL [Concomitant]

REACTIONS (1)
  - Extra dose administered [None]
